FAERS Safety Report 21131481 (Version 1)
Quarter: 2022Q3

REPORT INFORMATION
  Report Type: Spontaneous
  Country: GB (occurrence: GB)
  Receive Date: 20220726
  Receipt Date: 20220726
  Transmission Date: 20221026
  Serious: Yes (Disabling)
  Sender: FDA-Public Use
  Company Number: None

PATIENT
  Age: 70 Year
  Sex: Male
  Weight: 132 kg

DRUGS (12)
  1. AMOXICILLIN [Suspect]
     Active Substance: AMOXICILLIN
     Dates: start: 20220408
  2. AMITRIPTYLINE HYDROCHLORIDE, [Concomitant]
     Dosage: TWO OR THREE TABLETS AT BEDTIME ABOUT 2 HRS BEF...
     Dates: start: 20190418
  3. ATORVASTATIN, [Concomitant]
     Dosage: TAKE ONE DAILY
     Dates: start: 20190312
  4. COCODAMOL [Concomitant]
     Active Substance: ACETAMINOPHEN\CODEINE PHOSPHATE
     Dosage: TAKE TWO 4 TIMES/DAY
     Dates: start: 20220614
  5. DOXAZOSIN [Concomitant]
     Active Substance: DOXAZOSIN MESYLATE
     Dosage: TAKE ONE DAILY
     Dates: start: 20211223
  6. FINASTERIDE [Concomitant]
     Active Substance: FINASTERIDE
     Dosage: TAKE ONE DAILY
     Dates: start: 20210901
  7. FUROSEMIDE [Concomitant]
     Active Substance: FUROSEMIDE
     Dosage: TAKE ONE EACH LUNCHTIME
     Dates: start: 20210518, end: 20220324
  8. LISINOPRIL, [Concomitant]
     Dosage: TAKE ONE DAILY
     Dates: start: 20190312
  9. MIRABEGRON [Concomitant]
     Active Substance: MIRABEGRON
     Dosage: TAKE ONE DAILY
     Dates: start: 20190418
  10. SPIRONOLACTONE [Concomitant]
     Active Substance: SPIRONOLACTONE
     Dosage: TAKE ONE DAILY
     Dates: start: 20220324
  11. TAMSULOSIN HYDROCHLORIDE [Concomitant]
     Active Substance: TAMSULOSIN HYDROCHLORIDE
     Dosage: TAKE ONE DAILY
     Dates: start: 20200519
  12. VIAGRA [Concomitant]
     Active Substance: SILDENAFIL CITRATE
     Dosage: USE AS DIRECTED
     Dates: start: 20190312

REACTIONS (2)
  - Malaise [Recovered/Resolved]
  - Hypersensitivity [Unknown]

NARRATIVE: CASE EVENT DATE: 20220617
